FAERS Safety Report 25230752 (Version 2)
Quarter: 2025Q2

REPORT INFORMATION
  Report Type: Spontaneous
  Country: US (occurrence: US)
  Receive Date: 20250423
  Receipt Date: 20250510
  Transmission Date: 20250717
  Serious: No
  Sender: SANOFI AVENTIS
  Company Number: US-SA-2025SA116565

PATIENT
  Age: 28 Year
  Sex: Female

DRUGS (7)
  1. DUPIXENT [Suspect]
     Active Substance: DUPILUMAB
     Indication: Dermatitis atopic
     Route: 058
     Dates: start: 20250306, end: 20250306
  2. DUPIXENT [Suspect]
     Active Substance: DUPILUMAB
     Indication: Eczema
     Dosage: 300 MG, QOW
     Route: 058
     Dates: start: 202503
  3. CLARITIN [Concomitant]
     Active Substance: LORATADINE
  4. TACROLIMUS [Concomitant]
     Active Substance: TACROLIMUS
  5. FISH OIL [Concomitant]
     Active Substance: FISH OIL
  6. HYDROCORTISONE [Concomitant]
     Active Substance: HYDROCORTISONE
  7. VITAMIN D NOS [Concomitant]
     Active Substance: CHOLECALCIFEROL\ERGOCALCIFEROL

REACTIONS (4)
  - Dry eye [Unknown]
  - Eye pruritus [Unknown]
  - Injection site pain [Unknown]
  - Injection site erythema [Recovering/Resolving]

NARRATIVE: CASE EVENT DATE: 20250101
